FAERS Safety Report 10008602 (Version 1)
Quarter: 2014Q1

REPORT INFORMATION
  Report Type: Spontaneous
  Country: US (occurrence: US)
  Receive Date: 20140312
  Receipt Date: 20140312
  Transmission Date: 20141002
  Serious: No
  Sender: FDA-Public Use
  Company Number: US-INCYTE CORPORATION-2012IN000098

PATIENT
  Age: 30 Year
  Sex: Male

DRUGS (5)
  1. JAKAFI [Suspect]
     Dosage: UNK, BID
     Route: 048
     Dates: start: 201201
  2. ABILIFY [Concomitant]
     Dosage: 5 MG, QD
  3. LITHIUM [Concomitant]
     Dosage: 300 MG, BID
  4. COGENTIN [Concomitant]
     Dosage: 1 MG, BID
  5. MIRTAZAPINE [Concomitant]
     Dosage: 15 MG, QD AT BED TIME

REACTIONS (1)
  - Diarrhoea [Not Recovered/Not Resolved]
